FAERS Safety Report 10441401 (Version 1)
Quarter: 2014Q3

REPORT INFORMATION
  Report Type: Spontaneous
  Country: US (occurrence: None)
  Receive Date: 20140908
  Receipt Date: 20140908
  Transmission Date: 20150326
  Serious: No
  Sender: FDA-Public Use
  Company Number: None

PATIENT
  Age: 50 Year
  Sex: Female
  Weight: 90.72 kg

DRUGS (24)
  1. NEBULIZED LEVALBUTEROL [Concomitant]
  2. ZEGRID OTC [Concomitant]
     Active Substance: OMEPRAZOLE\SODIUM BICARBONATE
  3. PRILOSECT [Concomitant]
  4. PREDNISONE. [Concomitant]
     Active Substance: PREDNISONE
  5. TRAZODONE [Concomitant]
     Active Substance: TRAZODONE HYDROCHLORIDE
  6. MINIVELLE ESTROGEN [Concomitant]
  7. LEVAQUIN [Concomitant]
     Active Substance: LEVOFLOXACIN
  8. VALIUM [Concomitant]
     Active Substance: DIAZEPAM
  9. TUXXIONEX [Concomitant]
  10. SYMBICORT [Concomitant]
     Active Substance: BUDESONIDE\FORMOTEROL FUMARATE DIHYDRATE
  11. CROHN^S DISEASE + CROHN^S POLYARTHRITS [Concomitant]
  12. LORTAB [Concomitant]
     Active Substance: ACETAMINOPHEN\HYDROCODONE BITARTRATE
  13. ADDERALL [Concomitant]
     Active Substance: AMPHETAMINE ASPARTATE\AMPHETAMINE SULFATE\DEXTROAMPHETAMINE SACCHARATE\DEXTROAMPHETAMINE SULFATE
  14. ATROVENT INHALER [Concomitant]
  15. NULEV [Concomitant]
     Active Substance: HYOSCYAMINE SULFATE
  16. VITAMIN D 50,000 [Concomitant]
  17. CYMBLATA [Concomitant]
  18. SPIRIVA [Concomitant]
     Active Substance: TIOTROPIUM BROMIDE MONOHYDRATE
  19. HUMIRA INJECTION [Concomitant]
  20. AMBIEN [Concomitant]
     Active Substance: ZOLPIDEM TARTRATE
  21. AMPHETAMINE SALTS [Suspect]
     Active Substance: AMPHETAMINE ASPARTATE\AMPHETAMINE SULFATE\DEXTROAMPHETAMINE SACCHARATE\DEXTROAMPHETAMINE SULFATE
     Indication: FATIGUE
     Dosage: 20 MG 30 1X PER DAY ORALLY
     Route: 048
     Dates: start: 20140831, end: 20140904
  22. LOMOTIL [Concomitant]
     Active Substance: ATROPINE SULFATE\DIPHENOXYLATE HYDROCHLORIDE
  23. ALPRAZOLAM. [Concomitant]
     Active Substance: ALPRAZOLAM
  24. VAGIFEM [Concomitant]
     Active Substance: ESTRADIOL

REACTIONS (1)
  - Drug ineffective [None]

NARRATIVE: CASE EVENT DATE: 20140831
